FAERS Safety Report 4415672-5 (Version None)
Quarter: 2004Q2

REPORT INFORMATION
  Report Type: 
  Country: None (occurrence: None)
  Receive Date: 20040630
  Receipt Date: 20040202
  Transmission Date: 20050107
  Serious: Yes (Other)
  Sender: FDA-Public Use
  Company Number: 2004007445

PATIENT
  Age: 16 Year

DRUGS (3)
  1. ZOLOFT [Suspect]
     Indication: ILL-DEFINED DISORDER
  2. LORAZEPAM [Suspect]
     Indication: ILL-DEFINED DISORDER
  3. RISPERDAL [Suspect]
     Indication: ILL-DEFINED DISORDER

REACTIONS (1)
  - MURDER [None]
